FAERS Safety Report 23818048 (Version 1)
Quarter: 2024Q2

REPORT INFORMATION
  Report Type: Spontaneous
  Country: CN (occurrence: None)
  Receive Date: 20240506
  Receipt Date: 20240506
  Transmission Date: 20240715
  Serious: Yes (Other)
  Sender: FDA-Public Use
  Company Number: CN-ROCHE-3555619

PATIENT
  Sex: Female
  Weight: 67 kg

DRUGS (8)
  1. PERJETA [Suspect]
     Active Substance: PERTUZUMAB
     Indication: Breast cancer stage III
     Route: 065
  2. PERJETA [Suspect]
     Active Substance: PERTUZUMAB
     Route: 041
     Dates: start: 20240410
  3. TRASTUZUMAB [Suspect]
     Active Substance: TRASTUZUMAB
     Indication: Breast cancer stage III
     Dosage: NO-ROCHE
     Route: 041
     Dates: start: 20240410
  4. TRASTUZUMAB [Suspect]
     Active Substance: TRASTUZUMAB
     Dosage: ON AN UNKNOWN DATE, THE PATIENT RECEIVED TRASTUZUMAB FOR INJECTION (UNKNOWN ROUTE,? UNKNOWN DOSE)(NO
     Route: 065
  5. CARBOPLATIN [Suspect]
     Active Substance: CARBOPLATIN
     Indication: Chemotherapy
     Route: 041
     Dates: start: 20240411
  6. CARBOPLATIN [Suspect]
     Active Substance: CARBOPLATIN
     Dosage: ON AN UNKNOWN DATE, THE PATIENT RECEIVED CARBOPLATIN INJECTION (UNKNOWN ROUTE,? UNKNOWN DOSE)
     Route: 065
  7. DOCETAXEL [Suspect]
     Active Substance: DOCETAXEL\DOCETAXEL ANHYDROUS
     Indication: Chemotherapy
     Route: 041
     Dates: start: 20240411
  8. DOCETAXEL [Suspect]
     Active Substance: DOCETAXEL\DOCETAXEL ANHYDROUS
     Dosage: ON AN UNKNOWN DATE, THE PATIENT RECEIVED DOCETAXEL INJECTION (UNKNOWN ROUTE,? UNKNOWN DOSE)
     Route: 065

REACTIONS (4)
  - Myelosuppression [Recovering/Resolving]
  - Asthenia [Recovering/Resolving]
  - Decreased appetite [Recovering/Resolving]
  - Pyrexia [Recovering/Resolving]

NARRATIVE: CASE EVENT DATE: 20240419
